APPROVED DRUG PRODUCT: ACETAMINOPHEN
Active Ingredient: ACETAMINOPHEN
Strength: 1GM/VIAL
Dosage Form/Route: POWDER;INTRAVENOUS
Application: N206610 | Product #001
Applicant: RISING PHARMA HOLDING INC
Approved: Jan 15, 2021 | RLD: Yes | RS: No | Type: DISCN